FAERS Safety Report 18690510 (Version 1)
Quarter: 2020Q4

REPORT INFORMATION
  Report Type: Spontaneous
  Country: CA (occurrence: CA)
  Receive Date: 20201231
  Receipt Date: 20201231
  Transmission Date: 20210114
  Serious: Yes (Other)
  Sender: FDA-Public Use
  Company Number: CA-ROCHE-2741805

PATIENT
  Sex: Female
  Weight: 79 kg

DRUGS (14)
  1. ATACAND [Concomitant]
     Active Substance: CANDESARTAN CILEXETIL
  2. VENTOLIN [Concomitant]
     Active Substance: ALBUTEROL SULFATE
  3. RITUXIMAB. [Suspect]
     Active Substance: RITUXIMAB
     Indication: RHEUMATOID ARTHRITIS
     Route: 041
  4. VERAPAMIL [Concomitant]
     Active Substance: VERAPAMIL HYDROCHLORIDE
  5. PANTOLOC [Concomitant]
     Active Substance: PANTOPRAZOLE SODIUM
  6. FOLIC ACID. [Concomitant]
     Active Substance: FOLIC ACID
  7. PANTOPRAZOLE MAGNESIUM [Concomitant]
     Active Substance: PANTOPRAZOLE MAGNESIUM
  8. METHOTREXATE. [Suspect]
     Active Substance: METHOTREXATE
     Indication: PAIN
     Route: 065
  9. BUDESONIDE. [Concomitant]
     Active Substance: BUDESONIDE
  10. HYDROXYCHLOROQUINE [Concomitant]
     Active Substance: HYDROXYCHLOROQUINE
  11. ACETAMINOPHEN. [Concomitant]
     Active Substance: ACETAMINOPHEN
     Indication: PREMEDICATION
     Route: 048
  12. DIPHENHYDRAMINE HYDROCHLORIDE. [Concomitant]
     Active Substance: DIPHENHYDRAMINE HYDROCHLORIDE
     Route: 048
  13. RABEPRAZOLE [Concomitant]
     Active Substance: RABEPRAZOLE
  14. PREDNISONE. [Concomitant]
     Active Substance: PREDNISONE

REACTIONS (8)
  - Accidental overdose [Unknown]
  - Gastric disorder [Unknown]
  - Nausea [Unknown]
  - Weight increased [Unknown]
  - Pneumonia [Unknown]
  - Kidney infection [Unknown]
  - Stress [Unknown]
  - Urinary tract infection [Unknown]
